FAERS Safety Report 10072076 (Version 1)
Quarter: 2014Q2

REPORT INFORMATION
  Report Type: Spontaneous
  Country: GB (occurrence: None)
  Receive Date: 20140409
  Receipt Date: 20140409
  Transmission Date: 20141212
  Serious: Yes (Other)
  Sender: FDA-Public Use
  Company Number: AUR-APL-2014-04200

PATIENT
  Age: 45 Year
  Sex: Male
  Weight: 74 kg

DRUGS (4)
  1. AMLODIPINE [Suspect]
     Indication: HYPERTENSION
     Route: 048
     Dates: start: 20140102, end: 20140226
  2. BENDROFLUMETHIAZIDE (BENDROFLUMETHIAZIDE) [Concomitant]
  3. DOXAZOSIN (DOXAZOSIN) [Concomitant]
  4. LISINOPRIL (LISINOPRIL) [Concomitant]

REACTIONS (3)
  - Nausea [None]
  - Retching [None]
  - Vomiting [None]
